FAERS Safety Report 4526187-8 (Version None)
Quarter: 2004Q4

REPORT INFORMATION
  Report Type: 
  Country: None (occurrence: None)
  Receive Date: 20041210
  Receipt Date: 20041124
  Transmission Date: 20050328
  Serious: Yes (Other)
  Sender: FDA-Public Use
  Company Number: DSA_23034_2003

PATIENT
  Age: 60 Year
  Sex: Male
  Weight: 79.3795 kg

DRUGS (6)
  1. VASOTEC [Suspect]
     Indication: BLOOD PRESSURE INCREASED
     Dosage: 5 MG Q DAY PO
     Route: 048
     Dates: start: 19880101, end: 19880101
  2. CENTRUM [Concomitant]
  3. CROMOLYN SODIUM [Concomitant]
  4. CARDIZEM [Concomitant]
  5. MINIPRESS [Concomitant]
  6. CATAPRES [Concomitant]

REACTIONS (9)
  - ALLERGY TO PLANTS [None]
  - ASTHMA [None]
  - CAROTID ARTERY OCCLUSION [None]
  - COUGH [None]
  - LUNG INJURY [None]
  - MYOCARDIAL INFARCTION [None]
  - PAIN [None]
  - PNEUMONIA [None]
  - VOMITING [None]
